FAERS Safety Report 13577931 (Version 3)
Quarter: 2017Q2

REPORT INFORMATION
  Report Type: Report from Study
  Country: IT (occurrence: IT)
  Receive Date: 20170524
  Receipt Date: 20170603
  Transmission Date: 20170830
  Serious: Yes (Hospitalization)
  Sender: FDA-Public Use
  Company Number: IT-TEVA-770412ACC

PATIENT
  Age: 42 Year
  Sex: Female

DRUGS (2)
  1. AMOXICILLIN AND CLAVULANATE POTASSIUM [Suspect]
     Active Substance: AMOXICILLIN\CLAVULANATE POTASSIUM
     Indication: INFECTION
     Dosage: 1 DOSAGE FORMS DAILY;
     Route: 048
  2. OKI - 80 MG GRANULATO PER SOLUZIONE ORALE - DOMPE FARMACEUTICI S.P.A. [Suspect]
     Active Substance: KETOPROFEN LYSINE
     Indication: INFLAMMATION
     Dosage: 1 DF AS NECESSARY
     Route: 048

REACTIONS (5)
  - Vomiting [Recovering/Resolving]
  - Palpitations [Recovering/Resolving]
  - Palatal oedema [Recovering/Resolving]
  - Erythema [Recovering/Resolving]
  - Eyelid oedema [Recovering/Resolving]

NARRATIVE: CASE EVENT DATE: 20170507
